FAERS Safety Report 7986520-1 (Version None)
Quarter: 2011Q4

REPORT INFORMATION
  Report Type: 
  Country: None (occurrence: None)
  Receive Date: 20111216
  Receipt Date: 20110204
  Transmission Date: 20120403
  Serious: No
  Sender: FDA-Public Use
  Company Number: US-BRISTOL-MYERS SQUIBB COMPANY-15531395

PATIENT
  Age: 60 Year
  Sex: Female
  Weight: 47 kg

DRUGS (9)
  1. LEVOTHYROXINE SODIUM [Concomitant]
  2. LISINOPRIL [Concomitant]
  3. XANAX [Concomitant]
  4. ISOSORBIDE DINITRATE [Concomitant]
  5. KEPPRA [Concomitant]
  6. AMBIEN [Concomitant]
  7. CELEXA [Concomitant]
  8. ARTANE [Concomitant]
  9. ABILIFY [Suspect]
     Dates: start: 20090204

REACTIONS (3)
  - DYSKINESIA [None]
  - SPEECH DISORDER [None]
  - PARKINSONISM [None]
